FAERS Safety Report 6915986-0 (Version None)
Quarter: 2010Q3

REPORT INFORMATION
  Report Type: 
  Country: None (occurrence: None)
  Receive Date: 20100809
  Receipt Date: 20100809
  Transmission Date: 20110219
  Serious: Yes (Hospitalization)
  Sender: FDA-Public Use
  Company Number: None

PATIENT
  Age: 24 Year
  Sex: Male
  Weight: 74 kg

DRUGS (3)
  1. CLINDAMYCIN [Suspect]
     Indication: TOOTH ABSCESS
     Dosage: UNKNOWN  UNKNOWN PO
     Route: 048
  2. AMPHETAMINES [Concomitant]
  3. OPIATES [Concomitant]

REACTIONS (9)
  - CLOSTRIDIUM TEST POSITIVE [None]
  - COLITIS [None]
  - DEEP VEIN THROMBOSIS [None]
  - EOSINOPHILIA [None]
  - NAUSEA [None]
  - PLATELET COUNT DECREASED [None]
  - PULMONARY EMBOLISM [None]
  - SUBARACHNOID HAEMORRHAGE [None]
  - VOMITING [None]
